FAERS Safety Report 17128425 (Version 2)
Quarter: 2019Q4

REPORT INFORMATION
  Report Type: Report from Study
  Country: BR (occurrence: BR)
  Receive Date: 20191209
  Receipt Date: 20191216
  Transmission Date: 20200122
  Serious: Yes (Death, Life-Threatening, Other)
  Sender: FDA-Public Use
  Company Number: NVSC2019BR011149

PATIENT
  Age: 45 Year
  Sex: Female
  Weight: 41 kg

DRUGS (1)
  1. VOTRIENT [Suspect]
     Active Substance: PAZOPANIB HYDROCHLORIDE
     Indication: LUNG NEOPLASM MALIGNANT
     Dosage: 2 DF, QD
     Route: 048
     Dates: start: 20191009

REACTIONS (12)
  - Malignant neoplasm progression [Unknown]
  - Chest pain [Recovered/Resolved]
  - Prescribed underdose [Unknown]
  - Peripheral swelling [Recovered/Resolved]
  - Nausea [Recovering/Resolving]
  - Death [Fatal]
  - Malaise [Recovering/Resolving]
  - Bone pain [Recovering/Resolving]
  - Back pain [Recovered/Resolved]
  - Pain in extremity [Recovering/Resolving]
  - Metastases to liver [Unknown]
  - Pain [Recovered/Resolved]

NARRATIVE: CASE EVENT DATE: 201910
